FAERS Safety Report 9060916 (Version 4)
Quarter: 2013Q1

REPORT INFORMATION
  Report Type: Spontaneous
  Country: IT (occurrence: IT)
  Receive Date: 20130212
  Receipt Date: 20130314
  Transmission Date: 20140127
  Serious: Yes (Hospitalization)
  Sender: FDA-Public Use
  Company Number: IT-RANBAXY-2013R1-65088

PATIENT
  Age: 13 None
  Sex: Female

DRUGS (6)
  1. ALPRAZOLAM [Suspect]
     Indication: INTENTIONAL SELF-INJURY
     Dosage: 5 MG/DAY (5MG EVERY TOTAL)
     Route: 048
     Dates: start: 20130102, end: 20130102
  2. ESOMEPRAZOLE [Suspect]
     Indication: INTENTIONAL SELF-INJURY
     Dosage: 5 DF (EVERY TOTAL)
     Route: 048
     Dates: start: 20130102, end: 20130102
  3. PANTOPRAZOLE [Suspect]
     Indication: INTENTIONAL SELF-INJURY
     Dosage: 5 DF, DAILY (EVERY TOTAL)
     Route: 048
     Dates: start: 20130102, end: 20130102
  4. LAROXYL [Suspect]
     Indication: INTENTIONAL SELF-INJURY
     Dosage: EVERY TOTAL
     Route: 048
     Dates: start: 20130102, end: 20130102
  5. SPORANOX [Suspect]
     Indication: INTENTIONAL SELF-INJURY
     Dosage: EVERY TOTAL
     Route: 048
     Dates: start: 20130102, end: 20130102
  6. MORNIFLUMATE [Suspect]
     Indication: INTENTIONAL SELF-INJURY
     Dosage: 5 DF (EVERY TOTAL)
     Route: 048
     Dates: start: 20130102, end: 20130102

REACTIONS (3)
  - Sopor [Recovered/Resolved]
  - Aphasia [Recovered/Resolved]
  - Intentional overdose [Unknown]
